FAERS Safety Report 20648922 (Version 1)
Quarter: 2022Q1

REPORT INFORMATION
  Report Type: Report from Study
  Country: FR (occurrence: FR)
  Receive Date: 20220329
  Receipt Date: 20220329
  Transmission Date: 20220423
  Serious: Yes (Hospitalization)
  Sender: FDA-Public Use
  Company Number: FR-NOVARTISPH-NVSC2022FR069783

PATIENT
  Age: 51 Year
  Sex: Male

DRUGS (13)
  1. NILOTINIB [Suspect]
     Active Substance: NILOTINIB
     Indication: Philadelphia positive acute lymphocytic leukaemia
     Dosage: 800 MG
     Route: 048
     Dates: start: 20200117, end: 20200711
  2. IMATINIB [Suspect]
     Active Substance: IMATINIB
     Indication: Acute lymphocytic leukaemia
     Dosage: 600 MG
     Route: 048
     Dates: start: 20200907, end: 202012
  3. CYCLOPHOSPHAMIDE [Concomitant]
     Active Substance: CYCLOPHOSPHAMIDE
     Indication: Product used for unknown indication
     Dosage: 4200 MG
     Route: 042
     Dates: start: 20200718, end: 20200719
  4. BUSULFAN [Concomitant]
     Active Substance: BUSULFAN
     Indication: Product used for unknown indication
     Dosage: 270 MG
     Route: 042
     Dates: start: 20200720, end: 20200724
  5. BACTRIM [Concomitant]
     Active Substance: SULFAMETHOXAZOLE\TRIMETHOPRIM
     Indication: Infection prophylaxis
     Dosage: 960 MG
     Route: 048
     Dates: start: 20200416, end: 20201208
  6. VALACYCLOVIR HYDROCHLORIDE [Concomitant]
     Active Substance: VALACYCLOVIR HYDROCHLORIDE
     Indication: Infection
     Dosage: 1000 MG
     Route: 048
     Dates: start: 20200416
  7. PAROXETINE [Concomitant]
     Active Substance: PAROXETINE
     Indication: Depression
     Dosage: 20 MG
     Route: 048
     Dates: start: 20200903
  8. GEL TEARS [Concomitant]
     Indication: Eye irritation
     Dosage: 3 DRP
     Route: 065
     Dates: start: 20200813
  9. GEL TEARS [Concomitant]
     Indication: Dry eye
  10. POTASSIUM CHLORIDE [Concomitant]
     Active Substance: POTASSIUM CHLORIDE
     Indication: Prophylaxis
     Dosage: 1200 MG
     Route: 048
     Dates: start: 20200416
  11. POTASSIUM CHLORIDE [Concomitant]
     Active Substance: POTASSIUM CHLORIDE
     Indication: Hypokalaemia
  12. LEUCOVORIN CALCIUM [Concomitant]
     Active Substance: LEUCOVORIN CALCIUM
     Indication: Toxicity to various agents
     Dosage: 25 MG
     Route: 048
     Dates: start: 20200903, end: 20201208
  13. ALPRAZOLAM [Concomitant]
     Active Substance: ALPRAZOLAM
     Indication: Anxiety
     Dosage: 1 MG
     Route: 048
     Dates: start: 20200903

REACTIONS (1)
  - Oedema peripheral [Recovered/Resolved]

NARRATIVE: CASE EVENT DATE: 20201201
